FAERS Safety Report 23404850 (Version 1)
Quarter: 2024Q1

REPORT INFORMATION
  Report Type: Spontaneous
  Country: US (occurrence: US)
  Receive Date: 20240116
  Receipt Date: 20240116
  Transmission Date: 20240410
  Serious: No
  Sender: FDA-Public Use
  Company Number: US-JNJFOC-20240100949

PATIENT
  Age: 74 Year
  Sex: Female

DRUGS (2)
  1. WOMENS ROGAINE UNSCENTED [Suspect]
     Active Substance: MINOXIDIL
     Indication: Alopecia
     Dosage: PROBABLY USE LESS THAN 1/2 CAPFUL, DISPENSED DIRECTLY ON FINGERS ONCE A DAY
     Route: 061
     Dates: start: 2023
  2. SELSUN BLUE ITCHY DRY SCALP [Suspect]
     Active Substance: PYRITHIONE ZINC
     Indication: Dry skin
     Route: 061

REACTIONS (2)
  - Underdose [Unknown]
  - Contraindicated product administered [Unknown]

NARRATIVE: CASE EVENT DATE: 20230101
